FAERS Safety Report 5524519-5 (Version None)
Quarter: 2007Q4

REPORT INFORMATION
  Report Type: 
  Country: None (occurrence: None)
  Receive Date: 20071122
  Receipt Date: 20071116
  Transmission Date: 20080405
  Serious: Yes (Other)
  Sender: FDA-Public Use
  Company Number: PHFR2007GB03219

PATIENT
  Age: 68 Year
  Sex: Male
  Weight: 70 kg

DRUGS (19)
  1. PAMIDRONATE DISODIUM [Suspect]
     Indication: MULTIPLE MYELOMA
     Dosage: 90MG
     Route: 042
     Dates: start: 20070509, end: 20070725
  2. MORPHINE [Concomitant]
     Indication: PAIN
     Dosage: 60 MG, QD
     Route: 048
     Dates: start: 20070401
  3. SIMVASTATIN [Concomitant]
     Indication: BLOOD CHOLESTEROL INCREASED
     Dosage: 40 MG, QD
     Route: 048
     Dates: start: 20070401
  4. ALENDRONIC ACID [Concomitant]
     Dosage: 10 MG, QD
     Route: 048
     Dates: start: 20070401
  5. ADCAL-D3 [Concomitant]
     Dosage: 1.5 G, QD
     Route: 048
     Dates: start: 20070401
  6. DEXAMETHASONE [Concomitant]
     Dosage: 40 MG, QD
     Route: 048
     Dates: start: 20070401
  7. FLUCONAZOLE [Concomitant]
     Dosage: 50 MG, QD
     Route: 048
     Dates: start: 20070401
  8. DIGOXIN [Concomitant]
     Indication: CARDIAC DISORDER
     Dosage: 125 UG, QD
     Route: 048
     Dates: start: 20040101
  9. ALLOPURINOL [Concomitant]
     Indication: HYPERURICAEMIA
     Dosage: 300 MG, QD
     Route: 048
     Dates: start: 20070401
  10. EZETIMIBE [Concomitant]
     Indication: HYPERCHOLESTEROLAEMIA
     Dosage: 10 MG, QD
     Route: 048
     Dates: start: 20070401
  11. OMEPRAZOLE [Concomitant]
     Dosage: 20 MG, QD
     Route: 048
     Dates: start: 20070401
  12. MOVICOL [Concomitant]
     Indication: CONSTIPATION
     Route: 048
     Dates: start: 20070401
  13. COTRIM [Concomitant]
     Dosage: 960 MG, QD
     Route: 048
     Dates: start: 20070501
  14. ACYCLOVIR [Concomitant]
     Dosage: 1.2 G, QD
     Route: 048
     Dates: start: 20070501
  15. GRANISETRON [Concomitant]
     Indication: VOMITING
     Dosage: 2 MG, QD
     Route: 048
     Dates: start: 20070501
  16. METOCLOPRAMIDE [Concomitant]
     Dosage: 10-20MG PRN
     Route: 048
     Dates: start: 20070501
  17. WARFARIN SODIUM [Concomitant]
     Indication: ATRIAL FIBRILLATION
     Dosage: VARIABLE
     Route: 048
     Dates: start: 20070601
  18. THALIDOMIDE [Concomitant]
     Dosage: 100-200MG/DAY
     Route: 048
     Dates: start: 20070801
  19. FRUSEMIDE [Concomitant]
     Dosage: 40 MG, QD
     Route: 048
     Dates: start: 20070801

REACTIONS (3)
  - BONE DISORDER [None]
  - OSTEONECROSIS [None]
  - PAIN [None]
